FAERS Safety Report 10583618 (Version 14)
Quarter: 2016Q2

REPORT INFORMATION
  Report Type: Report from Study
  Country: CA (occurrence: CA)
  Receive Date: 20141114
  Receipt Date: 20160603
  Transmission Date: 20160815
  Serious: Yes (Other)
  Sender: FDA-Public Use
  Company Number: PHHY2014CA039250

PATIENT
  Age: 77 Year
  Sex: Male
  Weight: 56.69 kg

DRUGS (2)
  1. ATENOLOL. [Concomitant]
     Active Substance: ATENOLOL
     Indication: PRODUCT USED FOR UNKNOWN INDICATION
     Dosage: 50 MG, QD
     Route: 065
  2. SANDOSTATIN LAR DEPOT [Suspect]
     Active Substance: OCTREOTIDE ACETATE
     Indication: CARCINOID SYNDROME
     Dosage: 30 MG, QMO (EVERY 4 WEEKS)
     Route: 030
     Dates: start: 20140103

REACTIONS (41)
  - Apathy [Unknown]
  - Depressed mood [Unknown]
  - Hot flush [Unknown]
  - Contusion [Unknown]
  - Suicidal ideation [Unknown]
  - Weight decreased [Unknown]
  - Atelectasis [Unknown]
  - Pain in extremity [Unknown]
  - Spinal disorder [Unknown]
  - Eating disorder [Unknown]
  - Skin disorder [Unknown]
  - Nausea [Unknown]
  - Decreased appetite [Unknown]
  - Bradycardia [Unknown]
  - Abdominal pain upper [Unknown]
  - Cachexia [Unknown]
  - Body temperature decreased [Unknown]
  - Fatigue [Unknown]
  - Depression [Unknown]
  - Peripheral coldness [Unknown]
  - Hyperhidrosis [Unknown]
  - Nasopharyngitis [Unknown]
  - Sleep disorder [Unknown]
  - Muscle atrophy [Unknown]
  - Blood pressure decreased [Unknown]
  - Spinal pain [Unknown]
  - Ulcer [Unknown]
  - Cold sweat [Unknown]
  - Constipation [Unknown]
  - Blood pressure diastolic decreased [Unknown]
  - Hypophagia [Unknown]
  - Injection site pain [Unknown]
  - Abdominal mass [Unknown]
  - Blood pressure systolic increased [Unknown]
  - Malaise [Unknown]
  - Arthralgia [Unknown]
  - Sciatica [Unknown]
  - Injection site haemorrhage [Unknown]
  - Diarrhoea [Unknown]
  - Hypoaesthesia [Unknown]
  - Therapeutic response decreased [Unknown]

NARRATIVE: CASE EVENT DATE: 20140326
